FAERS Safety Report 24004501 (Version 1)
Quarter: 2024Q2

REPORT INFORMATION
  Report Type: Spontaneous
  Country: JP (occurrence: JP)
  Receive Date: 20240624
  Receipt Date: 20240624
  Transmission Date: 20240716
  Serious: Yes (Other)
  Sender: FDA-Public Use
  Company Number: JP-BIOCODEX2-2024000884

PATIENT
  Age: 8 Year
  Sex: Male

DRUGS (5)
  1. DIACOMIT [Suspect]
     Active Substance: STIRIPENTOL
     Indication: Severe myoclonic epilepsy of infancy
     Route: 048
  2. VPA (sodium valproate) [Concomitant]
     Indication: Product used for unknown indication
     Route: 065
  3. ZNS (zonisamide) [Concomitant]
     Indication: Product used for unknown indication
     Route: 065
  4. CLB (clobazam) [Concomitant]
     Indication: Product used for unknown indication
     Route: 065
  5. FFN (fenfluramine hydrochloride) [Concomitant]
     Indication: Product used for unknown indication
     Route: 065

REACTIONS (3)
  - Somnolence [Unknown]
  - Decreased appetite [Recovered/Resolved]
  - Tonic convulsion [Recovered/Resolved]
